FAERS Safety Report 7800076-5 (Version None)
Quarter: 2011Q4

REPORT INFORMATION
  Report Type: 
  Country: None (occurrence: None)
  Receive Date: 20111004
  Receipt Date: 20110921
  Transmission Date: 20120403
  Serious: Yes (Life-Threatening, Hospitalization, Other)
  Sender: FDA-Public Use
  Company Number: WAES 1105USA02419

PATIENT
  Age: 71 Year
  Sex: Male

DRUGS (5)
  1. ASPIRIN [Concomitant]
  2. ZOCOR [Suspect]
     Indication: ACUTE CORONARY SYNDROME
     Dosage: 40 MG/DAILY
     Route: 048
     Dates: start: 20091120, end: 20110505
  3. HYDROCHLOROTHIAZIDE [Concomitant]
  4. PLACEBO [Suspect]
     Indication: ACUTE CORONARY SYNDROME
     Route: 048
     Dates: start: 20091120, end: 20110505
  5. METOPROLOL TARTRATE [Concomitant]

REACTIONS (4)
  - THROMBOCYTOPENIA [None]
  - LEUKAEMIA MONOCYTIC [None]
  - ANAEMIA [None]
  - MYELOID LEUKAEMIA [None]
